FAERS Safety Report 22072443 (Version 1)
Quarter: 2023Q1

REPORT INFORMATION
  Report Type: Spontaneous
  Country: PT (occurrence: PT)
  Receive Date: 20230308
  Receipt Date: 20230308
  Transmission Date: 20230418
  Serious: Yes (Hospitalization, Other)
  Sender: FDA-Public Use
  Company Number: PT-TEVA-2023-PT-2857278

PATIENT
  Age: 24 Year
  Sex: Male

DRUGS (1)
  1. FLUCONAZOLE [Suspect]
     Active Substance: FLUCONAZOLE
     Indication: Oesophageal candidiasis
     Dosage: UNK
     Route: 065

REACTIONS (6)
  - Petechiae [Recovered/Resolved]
  - Vasculitis [Recovered/Resolved]
  - Anaemia [Recovering/Resolving]
  - Immune thrombocytopenia [Recovered/Resolved]
  - Mouth haemorrhage [Recovering/Resolving]
  - Thrombocytopenia [Recovering/Resolving]
